FAERS Safety Report 9068560 (Version 1)
Quarter: 2013Q1

REPORT INFORMATION
  Report Type: Spontaneous
  Country: RO (occurrence: RO)
  Receive Date: 20130206
  Receipt Date: 20130206
  Transmission Date: 20140127
  Serious: Yes (Other)
  Sender: FDA-Public Use
  Company Number: RO-UCBSA-077284

PATIENT
  Age: 47 Year
  Sex: Male

DRUGS (5)
  1. CIMZIA [Suspect]
     Indication: SERONEGATIVE ARTHRITIS
     Route: 058
     Dates: start: 20121030, end: 20121225
  2. OMEPRAZOLE [Concomitant]
     Dosage: DAILY DOSE: 20 MG
  3. SULFASALAZINE [Concomitant]
     Indication: SERONEGATIVE ARTHRITIS
     Dosage: DAILY DOSE:  3 G
     Dates: start: 201103
  4. ARAVA [Concomitant]
     Indication: SERONEGATIVE ARTHRITIS
     Dosage: DAILY DOSE: 20 MG
     Dates: start: 201207, end: 20130121
  5. DETRALEX [Concomitant]
     Indication: VENOUS INSUFFICIENCY
     Dosage: DAILY DOSE: 2 CP

REACTIONS (1)
  - Pustular psoriasis [Not Recovered/Not Resolved]
